FAERS Safety Report 26148378 (Version 1)
Quarter: 2025Q4

REPORT INFORMATION
  Report Type: Spontaneous
  Country: JP (occurrence: JP)
  Receive Date: 20251212
  Receipt Date: 20251212
  Transmission Date: 20260117
  Serious: Yes (Hospitalization)
  Sender: MERCK SHARP & DOHME LLC
  Company Number: JP-009507513-2328346

PATIENT
  Age: 61 Year
  Sex: Female
  Weight: 46.8 kg

DRUGS (10)
  1. KEYTRUDA [Suspect]
     Active Substance: PEMBROLIZUMAB
     Indication: Cervix carcinoma
     Route: 041
     Dates: start: 20250807, end: 20250807
  2. CISPLATIN [Concomitant]
     Active Substance: CISPLATIN
     Indication: Cervix carcinoma
     Route: 065
  3. HYDROMORPHONE HYDROCHLORIDE [Concomitant]
     Active Substance: HYDROMORPHONE HYDROCHLORIDE
     Dosage: AFTER DINNER
     Route: 048
     Dates: start: 20250725, end: 20250809
  4. ZYPREXA [Concomitant]
     Active Substance: OLANZAPINE
     Dosage: BEFORE BEDTIME
     Route: 048
     Dates: start: 20250815, end: 20250816
  5. DECADRON [Concomitant]
     Active Substance: DEXAMETHASONE
     Dosage: AFTER BREAKFAST
     Route: 048
     Dates: start: 20250816, end: 20250817
  6. HYDROMORPHONE HYDROCHLORIDE [Concomitant]
     Active Substance: HYDROMORPHONE HYDROCHLORIDE
     Dosage: TIME INTERVAL: AS NECESSARY: DURING PAIN
     Route: 048
     Dates: start: 20250725, end: 20250809
  7. BIO-THREE Combination Tablets [Concomitant]
     Dosage: TIME INTERVAL: 0.33333333 DAYS: AFTER BREAKFAST, LUNCH, AND DINNER
     Route: 048
     Dates: start: 20250725, end: 20250809
  8. CALONAL [Concomitant]
     Active Substance: ACETAMINOPHEN
     Dosage: TIME INTERVAL: 0.33333333 DAYS: AFTER BREAKFAST, LUNCH, AND DINNER
     Route: 048
     Dates: start: 20250725, end: 20250809
  9. AMOXICILLIN [Concomitant]
     Active Substance: AMOXICILLIN
     Dosage: TIME INTERVAL: 0.33333333 DAYS: AFTER BREAKFAST, LUNCH, AND DINNER
     Route: 048
     Dates: start: 20250806, end: 20250819
  10. AUGMENTIN [Concomitant]
     Active Substance: AMOXICILLIN\CLAVULANATE POTASSIUM
     Dosage: TIME INTERVAL: 0.33333333 DAYS: AFTER BREAKFAST, LUNCH, AND DINNER
     Route: 048
     Dates: start: 20250806, end: 20250819

REACTIONS (1)
  - Skin disorder [Recovered/Resolved]

NARRATIVE: CASE EVENT DATE: 20250818
